FAERS Safety Report 8510289-5 (Version None)
Quarter: 2012Q3

REPORT INFORMATION
  Report Type: 
  Country: None (occurrence: None)
  Receive Date: 20120713
  Receipt Date: 20120710
  Transmission Date: 20120928
  Serious: Yes (Death)
  Sender: FDA-Public Use
  Company Number: US-GILEAD-2012-0056750

PATIENT
  Sex: Male

DRUGS (7)
  1. REMODULIN [Concomitant]
  2. COUMADIN [Suspect]
  3. COREG [Concomitant]
  4. LETAIRIS [Suspect]
     Indication: PULMONARY HYPERTENSION
     Dosage: 5 MG, UNK
     Route: 048
     Dates: start: 20120515, end: 20120523
  5. LETAIRIS [Suspect]
     Indication: RIGHT VENTRICULAR FAILURE
  6. LASIX [Concomitant]
  7. DIGOXIN [Concomitant]

REACTIONS (1)
  - HAEMORRHAGE INTRACRANIAL [None]
